FAERS Safety Report 7399861-6 (Version None)
Quarter: 2011Q2

REPORT INFORMATION
  Report Type: 
  Country: None (occurrence: None)
  Receive Date: 20110407
  Receipt Date: 20110404
  Transmission Date: 20111010
  Serious: Yes (Other)
  Sender: FDA-Public Use
  Company Number: US-PFIZER INC-2011073948

PATIENT
  Sex: Male
  Weight: 80.726 kg

DRUGS (1)
  1. ADVIL LIQUI-GELS [Suspect]
     Indication: PROCEDURAL PAIN
     Dosage: 200 MG, 3X/DAY
     Route: 048
     Dates: start: 20110222, end: 20110330

REACTIONS (1)
  - PANIC ATTACK [None]
